FAERS Safety Report 4519874-9 (Version None)
Quarter: 2004Q4

REPORT INFORMATION
  Report Type: 
  Country: None (occurrence: None)
  Receive Date: 20041202
  Receipt Date: 20041202
  Transmission Date: 20050328
  Serious: Yes (Hospitalization)
  Sender: FDA-Public Use
  Company Number: None

PATIENT

DRUGS (5)
  1. PACLITAXEL [Suspect]
     Indication: BREAST CANCER
     Dosage: 146 - 169 MG IV WEEKLY
     Route: 042
     Dates: start: 20040528, end: 20040730
  2. TYLENOL (CAPLET) [Concomitant]
  3. BENADRYL [Concomitant]
  4. KYTRIL [Concomitant]
  5. DEXEMETHASONE [Concomitant]

REACTIONS (8)
  - ARTHRALGIA [None]
  - ASTHENIA [None]
  - CHILLS [None]
  - JOINT SWELLING [None]
  - PAIN IN EXTREMITY [None]
  - PLEURAL EFFUSION [None]
  - PYREXIA [None]
  - TENDERNESS [None]
